FAERS Safety Report 8443586-2 (Version None)
Quarter: 2012Q2

REPORT INFORMATION
  Report Type: 
  Country: None (occurrence: None)
  Receive Date: 20120618
  Receipt Date: 20120614
  Transmission Date: 20120825
  Serious: No
  Sender: FDA-Public Use
  Company Number: US-BAYER-2012-059524

PATIENT
  Age: 43 Year
  Sex: Female

DRUGS (5)
  1. LEVOTHYROXINE SODIUM [Concomitant]
  2. TOPIRAMATE [Concomitant]
  3. AVELOX [Suspect]
     Route: 048
  4. CRESTOR [Concomitant]
  5. NEXIUM [Concomitant]

REACTIONS (2)
  - ARTHRALGIA [None]
  - PARAESTHESIA [None]
